FAERS Safety Report 6911631-9 (Version None)
Quarter: 2010Q3

REPORT INFORMATION
  Report Type: 
  Country: None (occurrence: None)
  Receive Date: 20100806
  Receipt Date: 20100728
  Transmission Date: 20110219
  Serious: Yes (Other)
  Sender: FDA-Public Use
  Company Number: BR-ABBOTT-10P-020-0618821-00

PATIENT
  Sex: Female
  Weight: 60 kg

DRUGS (5)
  1. HUMIRA [Suspect]
     Indication: RHEUMATOID ARTHRITIS
     Route: 058
     Dates: start: 20050101
  2. CALCITRAN B12 [Concomitant]
     Indication: OSTEOPOROSIS PROPHYLAXIS
     Dates: start: 20080101
  3. METOPROLOL SUCCINATE [Concomitant]
     Indication: BLOOD PRESSURE
     Route: 048
     Dates: start: 20080101
  4. ACECLOFENAC [Concomitant]
     Indication: PAIN
     Route: 048
  5. TIBOLONE [Concomitant]
     Indication: HORMONE REPLACEMENT THERAPY

REACTIONS (12)
  - APPENDICECTOMY [None]
  - ARTHRITIS [None]
  - DYSPNOEA [None]
  - FINGER DEFORMITY [None]
  - FOOT DEFORMITY [None]
  - HAND DEFORMITY [None]
  - HYPERKERATOSIS [None]
  - LUNG NEOPLASM [None]
  - NODULE ON EXTREMITY [None]
  - OSTEOARTHRITIS [None]
  - OSTEOPENIA [None]
  - PULMONARY CONGESTION [None]
